FAERS Safety Report 24867853 (Version 1)
Quarter: 2025Q1

REPORT INFORMATION
  Report Type: Spontaneous
  Country: BR (occurrence: BR)
  Receive Date: 20250121
  Receipt Date: 20250121
  Transmission Date: 20250409
  Serious: Yes (Hospitalization, Other)
  Sender: Norvium Bioscience
  Company Number: BR-Norvium Bioscience LLC-079789

PATIENT
  Age: 26 Year
  Sex: Female

DRUGS (6)
  1. ZOLPIDEM TARTRATE [Suspect]
     Active Substance: ZOLPIDEM TARTRATE
     Indication: Insomnia
     Route: 048
  2. ZOLPIDEM TARTRATE [Suspect]
     Active Substance: ZOLPIDEM TARTRATE
     Indication: Insomnia
     Dosage: APPROXIMATELY 600-900 MG/DAY
     Route: 048
  3. ZOLPIDEM TARTRATE [Suspect]
     Active Substance: ZOLPIDEM TARTRATE
     Indication: Insomnia
     Dosage: AROUND 260 MG/DAY
     Route: 048
  4. ZOLPIDEM TARTRATE [Suspect]
     Active Substance: ZOLPIDEM TARTRATE
     Indication: Insomnia
     Dosage: REGRESSION TO 350 MG/DAY
     Route: 048
  5. ZOLPIDEM TARTRATE [Suspect]
     Active Substance: ZOLPIDEM TARTRATE
     Indication: Insomnia
     Route: 048
  6. ZOLPIDEM TARTRATE [Suspect]
     Active Substance: ZOLPIDEM TARTRATE
     Indication: Insomnia
     Dosage: INITIALLY WITH 200-300 MG ON SINGLE DAYS, ESCALATING TO 900-1200 MG/DAY RELAPSE
     Route: 048

REACTIONS (8)
  - Drug abuse [Recovered/Resolved]
  - Seizure [Recovered/Resolved]
  - Drug dependence [Recovered/Resolved]
  - Fall [Unknown]
  - Amnesia [Unknown]
  - Disturbance in attention [Unknown]
  - Drug tolerance [Unknown]
  - Social problem [Unknown]
